FAERS Safety Report 4688737-0 (Version None)
Quarter: 2005Q2

REPORT INFORMATION
  Report Type: 
  Country: None (occurrence: None)
  Receive Date: 20050608
  Receipt Date: 20050324
  Transmission Date: 20051028
  Serious: No
  Sender: FDA-Public Use
  Company Number: 2004-BP-12221BP

PATIENT
  Age: 56 Year
  Sex: Male
  Weight: 96 kg

DRUGS (7)
  1. SPIRIVA [Suspect]
     Indication: BRONCHOSPASM
     Dosage: 18 MCG (18 MCG, QD), IH
     Route: 055
     Dates: start: 20040914
  2. SPIRIVA [Suspect]
     Indication: CHRONIC OBSTRUCTIVE PULMONARY DISEASE
     Dosage: 18 MCG (18 MCG, QD), IH
     Route: 055
     Dates: start: 20040914
  3. SPIRIVA [Suspect]
     Indication: BRONCHOSPASM
     Dosage: 18 MCG (18 MCG, QD), IH
     Route: 055
     Dates: start: 20040914
  4. SPIRIVA [Suspect]
     Indication: CHRONIC OBSTRUCTIVE PULMONARY DISEASE
     Dosage: 18 MCG (18 MCG, QD), IH
     Route: 055
     Dates: start: 20040914
  5. ADVAIR DISKUS 100/50 [Concomitant]
  6. ALBUTEROL [Concomitant]
  7. CLARINEX [Concomitant]

REACTIONS (2)
  - AGEUSIA [None]
  - EPISTAXIS [None]
